FAERS Safety Report 5288249-X (Version None)
Quarter: 2007Q2

REPORT INFORMATION
  Report Type: 
  Country: None (occurrence: None)
  Receive Date: 20070403
  Receipt Date: 20070403
  Transmission Date: 20071010
  Serious: No
  Sender: FDA-Public Use
  Company Number: None

PATIENT
  Age: 43 Year
  Sex: Female
  Weight: 72.5755 kg

DRUGS (2)
  1. GADOLINIUM [Suspect]
     Dates: start: 20060113, end: 20060113
  2. GADOLINIUM [Suspect]
     Dates: start: 20060126, end: 20060126

REACTIONS (2)
  - NEPHROGENIC FIBROSING DERMOPATHY [None]
  - OSTEOMYELITIS [None]
